FAERS Safety Report 24169003 (Version 1)
Quarter: 2024Q3

REPORT INFORMATION
  Report Type: Spontaneous
  Country: US (occurrence: US)
  Receive Date: 20240802
  Receipt Date: 20240802
  Transmission Date: 20241017
  Serious: No
  Sender: PFIZER
  Company Number: US-PFIZER INC-202400023242

PATIENT
  Age: 46 Year
  Sex: Male

DRUGS (2)
  1. LITFULO [Interacting]
     Active Substance: RITLECITINIB TOSYLATE
     Dosage: 50 MG
  2. XELJANZ [Interacting]
     Active Substance: TOFACITINIB CITRATE

REACTIONS (3)
  - Drug interaction [Unknown]
  - Off label use [Unknown]
  - Product use issue [Unknown]
